FAERS Safety Report 18095758 (Version 3)
Quarter: 2020Q4

REPORT INFORMATION
  Report Type: Spontaneous
  Country: UA (occurrence: UA)
  Receive Date: 20200730
  Receipt Date: 20201001
  Transmission Date: 20210113
  Serious: Yes (Death, Hospitalization, Other)
  Sender: FDA-Public Use
  Company Number: UA-ABBVIE-20K-269-3492581-00

PATIENT
  Age: 52 Year
  Sex: Male
  Weight: 80 kg

DRUGS (8)
  1. VENCLYXTO [Suspect]
     Active Substance: VENETOCLAX
     Route: 048
     Dates: start: 20200731
  2. ALLOPURINOL. [Concomitant]
     Active Substance: ALLOPURINOL
     Indication: PROPHYLAXIS
     Route: 048
     Dates: start: 20200302
  3. ALLOPURINOL. [Concomitant]
     Active Substance: ALLOPURINOL
     Indication: TUMOUR LYSIS SYNDROME
  4. ACC [Concomitant]
     Active Substance: ACETYLCYSTEINE
     Indication: PRODUCT USED FOR UNKNOWN INDICATION
     Dosage: FOR 7-10 DAYS
  5. LEVOFLOXACIN. [Concomitant]
     Active Substance: LEVOFLOXACIN
     Indication: PRODUCT USED FOR UNKNOWN INDICATION
     Dosage: 7 DAYS
  6. VENCLYXTO [Suspect]
     Active Substance: VENETOCLAX
     Indication: MANTLE CELL LYMPHOMA
     Dosage: AFTER A MEAL, AROUND THE SAME TIME, WITH A GLASS OF WATER
     Route: 048
     Dates: start: 20200207, end: 20200224
  7. VENCLYXTO [Suspect]
     Active Substance: VENETOCLAX
     Route: 048
     Dates: start: 20200225, end: 20200302
  8. VENCLYXTO [Suspect]
     Active Substance: VENETOCLAX
     Route: 048
     Dates: start: 20200303, end: 2020

REACTIONS (22)
  - Lymphadenopathy [Recovered/Resolved]
  - Sinus tachycardia [Unknown]
  - Cardiac disorder [Unknown]
  - Hepatomegaly [Unknown]
  - Thrombocytopenia [Unknown]
  - Anaemia [Unknown]
  - COVID-19 [Recovered/Resolved]
  - Chemotherapy [Unknown]
  - Cough [Unknown]
  - Chemotherapy [Unknown]
  - Hyperhidrosis [Unknown]
  - Musculoskeletal disorder [Unknown]
  - Lymphadenopathy [Recovered/Resolved]
  - Off label use [Not Recovered/Not Resolved]
  - Splenomegaly [Unknown]
  - Mantle cell lymphoma [Unknown]
  - Asthenia [Unknown]
  - Lymphadenopathy [Unknown]
  - Breath sounds abnormal [Unknown]
  - Death [Fatal]
  - Pallor [Unknown]
  - Dyspnoea [Unknown]

NARRATIVE: CASE EVENT DATE: 2020
